FAERS Safety Report 4656813-4 (Version None)
Quarter: 2005Q2

REPORT INFORMATION
  Report Type: 
  Country: None (occurrence: None)
  Receive Date: 20050505
  Receipt Date: 20050421
  Transmission Date: 20051028
  Serious: Yes (Death)
  Sender: FDA-Public Use
  Company Number: 2005GB00098

PATIENT
  Age: 72 Year
  Sex: Female

DRUGS (3)
  1. PLENDIL [Suspect]
  2. ATENOLOL [Concomitant]
  3. ORTHO-GYNEST [Concomitant]

REACTIONS (1)
  - DEATH [None]
